FAERS Safety Report 4515937-2 (Version None)
Quarter: 2004Q4

REPORT INFORMATION
  Report Type: 
  Country: None (occurrence: None)
  Receive Date: 20041201
  Receipt Date: 20041116
  Transmission Date: 20050328
  Serious: Yes (Hospitalization)
  Sender: FDA-Public Use
  Company Number: 2004AL000984

PATIENT
  Age: 49 Year
  Sex: Female
  Weight: 58.9676 kg

DRUGS (3)
  1. DICLOFENAC SODIUM [Suspect]
     Indication: ARTHRITIS
     Dosage: 100 MG; QD; PO
     Route: 048
     Dates: start: 20031101, end: 20041011
  2. MENEST [Concomitant]
  3. NEXIUM [Concomitant]

REACTIONS (5)
  - ANAEMIA [None]
  - ARTHRALGIA [None]
  - DRUG HYPERSENSITIVITY [None]
  - HEADACHE [None]
  - PAIN [None]
